FAERS Safety Report 8439138-0 (Version None)
Quarter: 2012Q2

REPORT INFORMATION
  Report Type: 
  Country: None (occurrence: None)
  Receive Date: 20120615
  Receipt Date: 20120605
  Transmission Date: 20120825
  Serious: Yes (Other)
  Sender: FDA-Public Use
  Company Number: CA-BRISTOL-MYERS SQUIBB COMPANY-16672040

PATIENT
  Age: 85 Year
  Sex: Female

DRUGS (6)
  1. METFORMIN HCL [Concomitant]
  2. SYNTHROID [Concomitant]
  3. ORENCIA [Suspect]
     Indication: RHEUMATOID ARTHRITIS
     Dosage: LAST INFUSION: 05JUN2012 NO OF INF:6
     Route: 042
     Dates: start: 20120210
  4. CRESTOR [Concomitant]
  5. ACCUPRIL [Concomitant]
  6. GLYBURIDE [Concomitant]

REACTIONS (1)
  - THROMBOSIS [None]
